FAERS Safety Report 7620620-0 (Version None)
Quarter: 2011Q3

REPORT INFORMATION
  Report Type: 
  Country: None (occurrence: None)
  Receive Date: 20110719
  Receipt Date: 20110719
  Transmission Date: 20111222
  Serious: Yes (Hospitalization)
  Sender: FDA-Public Use
  Company Number: KR-ABBOTT-11P-090-0836561-00

PATIENT
  Age: 43 Year
  Sex: Male
  Weight: 52 kg

DRUGS (8)
  1. MEDILAC-DS [Concomitant]
     Indication: PROPHYLAXIS
  2. KALETRA [Suspect]
     Indication: PRODUCT USED FOR UNKNOWN INDICATION
     Dates: start: 20100618
  3. 3TC/AZT [Concomitant]
     Indication: ANTIRETROVIRAL THERAPY
     Dosage: 2 TABLETS DAILY
     Dates: start: 20100618
  4. SEPTRA [Concomitant]
     Indication: OPPORTUNISTIC INFECTION PROPHYLAXIS
     Dosage: 1 TABLET DAILY
     Route: 048
     Dates: start: 20100618
  5. FEXADIN [Concomitant]
     Indication: GASTRIC DISORDER
     Dosage: 100MG DAILY
     Route: 048
     Dates: start: 20100618
  6. FEXADIN [Concomitant]
     Indication: PROPHYLAXIS
  7. MEDILAC-DS [Concomitant]
     Indication: GASTRIC DISORDER
     Dosage: 1 CAPSULE DAILY
     Route: 048
     Dates: start: 20100618
  8. OXIRACETAM [Concomitant]
     Indication: AIDS DEMENTIA COMPLEX
     Dosage: 800MG DAILY
     Route: 048
     Dates: start: 20100712, end: 20100808

REACTIONS (4)
  - PRURITUS GENERALISED [None]
  - DEPRESSION [None]
  - PROGRESSIVE MULTIFOCAL LEUKOENCEPHALOPATHY [None]
  - COUGH [None]
